FAERS Safety Report 4539661-5 (Version None)
Quarter: 2004Q4

REPORT INFORMATION
  Report Type: 
  Country: None (occurrence: None)
  Receive Date: 20041223
  Receipt Date: 20041220
  Transmission Date: 20050328
  Serious: Yes (Death, Life-Threatening, Hospitalization)
  Sender: FDA-Public Use
  Company Number: HQWYE974515DEC04

PATIENT
  Age: 62 Year
  Sex: Female

DRUGS (2)
  1. RAPAMUNE [Suspect]
     Indication: PROPHYLAXIS AGAINST TRANSPLANT REJECTION
     Dosage: VARIED DOSE OF 2 TO 5 MG ORAL
     Route: 048
     Dates: start: 20041104, end: 20041130
  2. RAPAMUNE [Suspect]

REACTIONS (18)
  - ATELECTASIS [None]
  - BACTERIAL INFECTION [None]
  - BRONCHOPNEUMONIA [None]
  - CATHETER RELATED INFECTION [None]
  - DEPRESSED LEVEL OF CONSCIOUSNESS [None]
  - FUNGAL INFECTION [None]
  - HYPOTENSION [None]
  - ILEUS [None]
  - IMMUNOSUPPRESSION [None]
  - INTESTINAL DILATATION [None]
  - LEUKOPENIA [None]
  - MICROANGIOPATHIC HAEMOLYTIC ANAEMIA [None]
  - OXYGEN SATURATION DECREASED [None]
  - PNEUMONIA ASPIRATION [None]
  - POST PROCEDURAL COMPLICATION [None]
  - SEPSIS [None]
  - STAPHYLOCOCCAL INFECTION [None]
  - THROMBOCYTOPENIA [None]
